FAERS Safety Report 5372809-1 (Version None)
Quarter: 2007Q2

REPORT INFORMATION
  Report Type: 
  Country: None (occurrence: None)
  Receive Date: 20070626
  Receipt Date: 20070611
  Transmission Date: 20071010
  Serious: Yes (Hospitalization)
  Sender: FDA-Public Use
  Company Number: 100#08#2007-02230

PATIENT
  Age: 50 Year
  Sex: Female

DRUGS (7)
  1. METHADONE (METHADONE) (METHADONE) [Suspect]
     Indication: DRUG ABUSER
     Dosage: 145-30MG (TAPERED BY 10% DAILY) --
  2. ALPRAZOLAM [Suspect]
     Indication: DRUG USE FOR UNKNOWN INDICATION
  3. ZIDOVUDINE [Suspect]
     Indication: DRUG USE FOR UNKNOWN INDICATION
  4. TRAZODONE (TRAZODONE) (TRAZODONE) [Suspect]
     Indication: DRUG USE FOR UNKNOWN INDICATION
  5. TENOFOVIR (TENOFOVIR) (TENOFOVIR) [Suspect]
     Indication: DRUG USE FOR UNKNOWN INDICATION
  6. LAMIVUDINE [Suspect]
     Indication: DRUG USE FOR UNKNOWN INDICATION
  7. ABACAVIR [Suspect]
     Indication: DRUG USE FOR UNKNOWN INDICATION

REACTIONS (9)
  - BLOOD MAGNESIUM DECREASED [None]
  - BLOOD POTASSIUM DECREASED [None]
  - DRUG ABUSER [None]
  - DRUG INTERACTION [None]
  - DRUG LEVEL INCREASED [None]
  - HYPERHIDROSIS [None]
  - LOSS OF CONSCIOUSNESS [None]
  - TORSADE DE POINTES [None]
  - TREMOR [None]
